FAERS Safety Report 26014792 (Version 1)
Quarter: 2025Q4

REPORT INFORMATION
  Report Type: Report from Study
  Country: US (occurrence: US)
  Receive Date: 20251108
  Receipt Date: 20251108
  Transmission Date: 20260118
  Serious: Yes (Other)
  Sender: JOHNSON AND JOHNSON
  Company Number: US-JNJFOC-20251148257

PATIENT
  Age: 58 Year
  Sex: Female

DRUGS (4)
  1. SPRAVATO [Suspect]
     Active Substance: ESKETAMINE
     Indication: Depression
     Dosage: ?56 MG, 2 TOTAL DOSES?
     Route: 045
     Dates: start: 20251031, end: 20251103
  2. SPRAVATO [Suspect]
     Active Substance: ESKETAMINE
     Dosage: ?56 MG, 1 TOTAL DOSES?
     Route: 045
     Dates: start: 20251105, end: 20251105
  3. SPRAVATO [Suspect]
     Active Substance: ESKETAMINE
     Dosage: ?56 MG, 1 TOTAL DOSES?
     Route: 045
     Dates: start: 20251027, end: 20251027
  4. KLONOPIN [Concomitant]
     Active Substance: CLONAZEPAM
     Indication: Product used for unknown indication

REACTIONS (2)
  - Sedation [Recovered/Resolved]
  - Dissociation [Recovered/Resolved]

NARRATIVE: CASE EVENT DATE: 20251105
